FAERS Safety Report 8619344-2 (Version None)
Quarter: 2012Q3

REPORT INFORMATION
  Report Type: 
  Country: None (occurrence: None)
  Receive Date: 20120810
  Receipt Date: 20120730
  Transmission Date: 20120928
  Serious: Yes (Other)
  Sender: FDA-Public Use
  Company Number: 2012P1052848

PATIENT
  Sex: Male

DRUGS (2)
  1. PEPCID [Suspect]
     Indication: DYSPEPSIA
  2. CELEBREX [Concomitant]

REACTIONS (2)
  - GASTRIC HAEMORRHAGE [None]
  - HAEMATOCHEZIA [None]
